FAERS Safety Report 19967855 (Version 1)
Quarter: 2021Q4

REPORT INFORMATION
  Report Type: Spontaneous
  Country: AU (occurrence: AU)
  Receive Date: 20211019
  Receipt Date: 20211019
  Transmission Date: 20220303
  Serious: Yes (Hospitalization)
  Sender: FDA-Public Use
  Company Number: AU-ROCHE-2937034

PATIENT
  Sex: Female
  Weight: 5 kg

DRUGS (1)
  1. VALCYTE [Suspect]
     Active Substance: VALGANCICLOVIR HYDROCHLORIDE
     Indication: Congenital cytomegalovirus infection
     Route: 065
     Dates: start: 20210811

REACTIONS (3)
  - Anaemia [Unknown]
  - Pallor [Unknown]
  - Lethargy [Unknown]
